FAERS Safety Report 9515876 (Version 1)
Quarter: 2013Q1

REPORT INFORMATION
  Report Type: Spontaneous
  Country: US (occurrence: None)
  Receive Date: 20130305
  Receipt Date: 20130305
  Transmission Date: 20140127
  Serious: Yes (Other)
  Sender: FDA-Public Use
  Company Number: 163-21880-12113161

PATIENT
  Sex: 0

DRUGS (5)
  1. REVLIMID (LENALIDOMIDE) (CAPSULES) [Suspect]
     Dosage: 10 MG, 21 IN 21 D, PO
     Route: 048
     Dates: start: 20110806
  2. METOPROLOL (METOPROLOL) (UNKNOWN) [Concomitant]
  3. ERYTHROMYCIN (ERYTHROMYCIN) (UNKOWN) [Concomitant]
  4. VELCADE (UNKNOWN) [Concomitant]
  5. COUMADIN (WARFARIN SODIUUM) (UKNOWN) [Concomitant]

REACTIONS (1)
  - Cough [None]
